FAERS Safety Report 10048735 (Version 1)
Quarter: 2014Q1

REPORT INFORMATION
  Report Type: Spontaneous
  Country: ES (occurrence: ES)
  Receive Date: 20140331
  Receipt Date: 20140331
  Transmission Date: 20141002
  Serious: Yes (Other)
  Sender: FDA-Public Use
  Company Number: ES-VERTEX PHARMACEUTICALS INC-2014-001690

PATIENT
  Age: 47 Year
  Sex: Male

DRUGS (3)
  1. INCIVO [Suspect]
     Indication: CHRONIC HEPATITIS C
     Dosage: 1125 MG, BID
     Route: 048
     Dates: start: 20140117, end: 20140311
  2. PEGASYS [Suspect]
     Indication: CHRONIC HEPATITIS C
     Dosage: DOSAGE FORM: INJECTION
     Route: 058
     Dates: start: 20140117
  3. RIBAVIRIN [Suspect]
     Indication: CHRONIC HEPATITIS C
     Dosage: DOSAGE FORM: UNKNOWN
     Route: 048
     Dates: start: 20140117

REACTIONS (2)
  - Pancytopenia [Not Recovered/Not Resolved]
  - Skin reaction [Not Recovered/Not Resolved]
